FAERS Safety Report 24079431 (Version 1)
Quarter: 2024Q3

REPORT INFORMATION
  Report Type: Spontaneous
  Country: US (occurrence: US)
  Receive Date: 20240711
  Receipt Date: 20240711
  Transmission Date: 20241016
  Serious: No
  Sender: BEIGENE
  Company Number: US-BEIGENE-BGN-2024-009251

PATIENT

DRUGS (2)
  1. BRUKINSA [Suspect]
     Active Substance: ZANUBRUTINIB
     Indication: Leukaemic lymphoma
     Dosage: 160 MILLIGRAM, Q12H
     Route: 065
     Dates: start: 20230301
  2. BRUKINSA [Suspect]
     Active Substance: ZANUBRUTINIB
     Dosage: 80 MILLIGRAM, Q12H
     Route: 065

REACTIONS (2)
  - Asthenia [Unknown]
  - Diarrhoea [Unknown]
